FAERS Safety Report 25444559 (Version 5)
Quarter: 2025Q4

REPORT INFORMATION
  Report Type: Report from Study
  Country: EU (occurrence: EU)
  Receive Date: 20250617
  Receipt Date: 20251126
  Transmission Date: 20260117
  Serious: Yes (Life-Threatening, Hospitalization, Other)
  Sender: ALEXION PHARMACEUTICALS
  Company Number: EU-ASTRAZENECA-202506GLO011246ES

PATIENT
  Age: 76 Year
  Sex: Female

DRUGS (1)
  1. ACALABRUTINIB [Suspect]
     Active Substance: ACALABRUTINIB
     Indication: Chronic lymphocytic leukaemia
     Dosage: 200 BID
     Dates: start: 20250201, end: 20250515

REACTIONS (1)
  - Pneumonia necrotising [Not Recovered/Not Resolved]

NARRATIVE: CASE EVENT DATE: 20250605
